FAERS Safety Report 5245256-0 (Version None)
Quarter: 2007Q1

REPORT INFORMATION
  Report Type: 
  Country: None (occurrence: None)
  Receive Date: 20070223
  Receipt Date: 20070209
  Transmission Date: 20070707
  Serious: Yes (Other)
  Sender: FDA-Public Use
  Company Number: JP-MERCK-0701USA04658

PATIENT
  Age: 58 Year
  Sex: Female
  Weight: 68 kg

DRUGS (1)
  1. HYZAAR [Suspect]
     Indication: HYPERTENSION
     Route: 048
     Dates: start: 20061209, end: 20070122

REACTIONS (7)
  - BLISTER [None]
  - CHEILITIS [None]
  - EXFOLIATIVE RASH [None]
  - PHOTOSENSITIVITY REACTION [None]
  - PITYRIASIS [None]
  - RASH [None]
  - SCAB [None]
